FAERS Safety Report 9935097 (Version 1)
Quarter: 2014Q1

REPORT INFORMATION
  Report Type: Spontaneous
  Country: US (occurrence: US)
  Receive Date: 20140228
  Receipt Date: 20140228
  Transmission Date: 20141002
  Serious: Yes (Other)
  Sender: FDA-Public Use
  Company Number: US-PFIZER INC-2014057765

PATIENT
  Age: 88 Year
  Sex: Male
  Weight: 100.68 kg

DRUGS (8)
  1. CARDURA [Suspect]
     Indication: BLOOD PRESSURE
     Dosage: UNK
  2. ACCUPRIL [Suspect]
     Dosage: UNK
  3. ACCURETIC [Suspect]
     Dosage: UNK
  4. VIAGRA [Suspect]
     Dosage: UNK
  5. NORVASC [Suspect]
     Dosage: UNK
  6. CELEBREX [Suspect]
     Dosage: UNK
  7. FELDENE [Suspect]
     Dosage: UNK
  8. ZOLOFT [Suspect]
     Indication: AFFECTIVE DISORDER
     Dosage: UNK

REACTIONS (2)
  - Cervical vertebral fracture [Recovered/Resolved]
  - Arthropathy [Unknown]
